FAERS Safety Report 13602516 (Version 1)
Quarter: 2017Q2

REPORT INFORMATION
  Report Type: Spontaneous
  Country: SE (occurrence: SE)
  Receive Date: 20170601
  Receipt Date: 20170601
  Transmission Date: 20170830
  Serious: Yes (Hospitalization)
  Sender: FDA-Public Use
  Company Number: SE-TEVA-771399ACC

PATIENT
  Age: 53 Year
  Sex: Female

DRUGS (23)
  1. IMDUR 30 MG DEPOTTABLETT [Concomitant]
  2. BISOPROLOL ACTAVIS 5 MG TABLETT [Concomitant]
  3. OMEPRAZOL ACTAVIS 20 MG ENTEROKAPSEL, H?RD [Concomitant]
  4. JANUVIA 50 MG FILMDRAGERAD TABLETT [Concomitant]
  5. BEHEPAN 1 MG FILMDRAGERAD TABLETT [Concomitant]
  6. MINIDERM 20 % KR?M [Concomitant]
  7. SIMVASTATIN BLUEFISH 20 MG FILMDRAGERAD TABLETT [Concomitant]
  8. CYMBALTA 30 MG ENTEROKAPSEL, H?RD [Concomitant]
  9. INOLAXOL  GRANULAT I DOSP?SE [Concomitant]
     Dosage: GRANULES IN A BAG
  10. MIRTAZAPINE ACTAVIS [Suspect]
     Active Substance: MIRTAZAPINE
     Indication: INSOMNIA
  11. ALVEDON 500 MG [Concomitant]
  12. DIVISUN 800 IE TABLETT [Concomitant]
  13. OVESTERIN 0,5 MG VAGITORIUM [Concomitant]
     Dosage: PESSARY
  14. HUMULIN NPH KWIKPEN 100 IE/ML INJEKTIONSV?TSKA, SUSPENSION I F?RFYLLD [Concomitant]
  15. METFORMIN ACTAVIS 500 MG [Concomitant]
  16. MIRTAZAPINE ACTAVIS [Suspect]
     Active Substance: MIRTAZAPINE
     Indication: DEPRESSIVE SYMPTOM
     Route: 048
     Dates: start: 20170330, end: 20170404
  17. AMLODIPIN ACTAVIS 5 MG TABLETT [Concomitant]
  18. ENALAPRIL SANDOZ 20 MG TABLETT [Concomitant]
  19. IKTORIVIL 0,5 MG TABLETT [Concomitant]
  20. KETOCONAZOL ACTAVIS 20 MG/G SCHAMPO [Concomitant]
  21. TROMBYL 75 MG TABLETT [Concomitant]
     Active Substance: ASPIRIN
  22. LOCOBASE LPL 200 MG/G+45 MG/G KR?M [Concomitant]
  23. ORUDIS RETARD 200 MG DEPOTKAPSEL, H?RD [Concomitant]

REACTIONS (3)
  - Fall [Recovered/Resolved]
  - Syncope [Recovered/Resolved]
  - Balance disorder [Recovered/Resolved]

NARRATIVE: CASE EVENT DATE: 20170331
